FAERS Safety Report 22210921 (Version 1)
Quarter: 2023Q2

REPORT INFORMATION
  Report Type: Spontaneous
  Country: US (occurrence: None)
  Receive Date: 20230413
  Receipt Date: 20230413
  Transmission Date: 20230722
  Serious: No
  Sender: FDA-Public Use
  Company Number: None

PATIENT
  Age: 66 Year
  Sex: Male

DRUGS (1)
  1. ABIRATERONE [Suspect]
     Active Substance: ABIRATERONE
     Dosage: FREQUENCY : DAILY;?
     Route: 048

REACTIONS (7)
  - Hot flush [None]
  - Neck pain [None]
  - Pain in extremity [None]
  - Insurance issue [None]
  - Therapy interrupted [None]
  - Depression [None]
  - Suicide threat [None]

NARRATIVE: CASE EVENT DATE: 20230413
